FAERS Safety Report 6310417-6 (Version None)
Quarter: 2009Q3

REPORT INFORMATION
  Report Type: 
  Country: None (occurrence: None)
  Receive Date: 20090814
  Receipt Date: 20090805
  Transmission Date: 20100115
  Serious: Yes (Life-Threatening)
  Sender: FDA-Public Use
  Company Number: JP-PFIZER INC-2009214380

PATIENT
  Age: 65 Year

DRUGS (1)
  1. SOLU-MEDROL [Suspect]
     Dosage: 250 MG, 1X/DAY
     Route: 042
     Dates: start: 20090507, end: 20090507

REACTIONS (2)
  - BLOOD PRESSURE DECREASED [None]
  - PARAESTHESIA [None]
